FAERS Safety Report 6725739-4 (Version None)
Quarter: 2010Q2

REPORT INFORMATION
  Report Type: 
  Country: None (occurrence: None)
  Receive Date: 20100514
  Receipt Date: 20100506
  Transmission Date: 20101027
  Serious: Yes (Other)
  Sender: FDA-Public Use
  Company Number: US-PFIZER INC-2010057204

PATIENT
  Sex: Male

DRUGS (1)
  1. CAMPTOSAR [Suspect]
     Indication: LUNG NEOPLASM
     Dosage: 240 MG, DAY 1 AND 8 OF 28 DAY CYCLE

REACTIONS (1)
  - SCROTAL ABSCESS [None]
